FAERS Safety Report 12203921 (Version 1)
Quarter: 2016Q1

REPORT INFORMATION
  Report Type: Spontaneous
  Country: US (occurrence: US)
  Receive Date: 20160323
  Receipt Date: 20160323
  Transmission Date: 20160526
  Serious: No
  Sender: FDA-Public Use
  Company Number: US-ROXANE LABORATORIES, INC.-2016-RO-00589RO

PATIENT
  Sex: Male

DRUGS (1)
  1. CLOTRIMAZOLE TROCHE [Suspect]
     Active Substance: CLOTRIMAZOLE
     Indication: CANDIDA INFECTION
     Route: 065

REACTIONS (1)
  - Aphonia [Unknown]
